FAERS Safety Report 4313327-9 (Version None)
Quarter: 2004Q1

REPORT INFORMATION
  Report Type: 
  Country: None (occurrence: None)
  Receive Date: 20040304
  Receipt Date: 20040225
  Transmission Date: 20041129
  Serious: Yes (Disabling)
  Sender: FDA-Public Use
  Company Number: 2004005205

PATIENT
  Age: 84 Year
  Sex: Female

DRUGS (5)
  1. LIPITOR [Suspect]
     Indication: HYPERLIPIDAEMIA
     Dosage: 20 MG (DAILY), ORAL
     Route: 048
     Dates: start: 19991101, end: 20030714
  2. LEVOTHYROXINE SODIUM [Concomitant]
  3. METOPROLOL (METOPROLOL) [Concomitant]
  4. WARFARIN SODIUM [Concomitant]
  5. CALCIUM (CALCIUM) [Concomitant]

REACTIONS (5)
  - BURNING SENSATION [None]
  - NEUROPATHY [None]
  - PAIN [None]
  - SENSORY LOSS [None]
  - VESTIBULAR DISORDER [None]
